FAERS Safety Report 9153973 (Version 1)
Quarter: 2013Q1

REPORT INFORMATION
  Report Type: Report from Study
  Country: DE (occurrence: DE)
  Receive Date: 20130311
  Receipt Date: 20130311
  Transmission Date: 20140127
  Serious: Yes (Hospitalization)
  Sender: FDA-Public Use
  Company Number: DE-BRISTOL-MYERS SQUIBB COMPANY-17431578

PATIENT
  Age: 58 Year
  Sex: Female
  Weight: 52 kg

DRUGS (3)
  1. CARBOPLATIN [Suspect]
     Indication: OVARIAN CANCER
     Dosage: RECENT DOSE 30JAN13
     Route: 042
     Dates: start: 20120109
  2. PACLITAXEL [Suspect]
     Indication: OVARIAN CANCER
     Dosage: 175MG/KG-271.25 MG (780MG)?RECENT DOSE 30JAN13
     Route: 042
     Dates: start: 20130109
  3. BEVACIZUMAB [Suspect]
     Indication: OVARIAN CANCER
     Dosage: 15MG/KG-780MG?RECENT DOSE 30JAN13
     Route: 042
     Dates: start: 20130109

REACTIONS (1)
  - Subileus [Recovered/Resolved]
